FAERS Safety Report 16135090 (Version 1)
Quarter: 2019Q1

REPORT INFORMATION
  Report Type: Spontaneous
  Country: PL (occurrence: PL)
  Receive Date: 20190329
  Receipt Date: 20190329
  Transmission Date: 20190418
  Serious: Yes (Other)
  Sender: FDA-Public Use
  Company Number: PL-SA-2018SA390104

PATIENT
  Age: 62 Year
  Sex: Male

DRUGS (21)
  1. METOPROLOL. [Concomitant]
     Active Substance: METOPROLOL
     Dosage: 25 MG, QD
  2. KETOPROFEN. [Concomitant]
     Active Substance: KETOPROFEN
     Dosage: 100 MG, BID
  3. CALCIUM FOLINATE [Suspect]
     Active Substance: LEUCOVORIN CALCIUM
     Indication: PANCREATIC CARCINOMA
     Dosage: UNK UNK, QCY
  4. OXYCODONE [Suspect]
     Active Substance: OXYCODONE
     Dosage: ROTATING WITHIN 3 DAYS BY 1/3 OF DAILY DOSEUNK
  5. OXALIPLATIN. [Suspect]
     Active Substance: OXALIPLATIN
     Dosage: UNK
  6. FUROSEMIDE. [Concomitant]
     Active Substance: FUROSEMIDE
     Dosage: 40 MG, QD
  7. IRINOTECAN [Suspect]
     Active Substance: IRINOTECAN
     Dosage: UNK
  8. LACTULOSE. [Concomitant]
     Active Substance: LACTULOSE
     Indication: CONSTIPATION PROPHYLAXIS
     Dosage: 20 ML, TID
  9. SPIRONOLACTONE. [Concomitant]
     Active Substance: SPIRONOLACTONE
     Dosage: 25 MG,EVERY OTHER DAY
  10. OXYCODONE [Suspect]
     Active Substance: OXYCODONE
     Dosage: 140 MG, QD
  11. FLUOROURACIL. [Suspect]
     Active Substance: FLUOROURACIL
     Indication: PANCREATIC CARCINOMA
     Dosage: UNK UNK, QCY
  12. IRINOTECAN [Suspect]
     Active Substance: IRINOTECAN
     Indication: PANCREATIC CARCINOMA
     Dosage: UNK UNK, QCY
  13. ALPRAZOLAM. [Concomitant]
     Active Substance: ALPRAZOLAM
     Dosage: 0.25 UG, BID
  14. OXYCODONE [Suspect]
     Active Substance: OXYCODONE
     Indication: POLYNEUROPATHY
     Dosage: 60 MG, BID
  15. OXYCODONE [Suspect]
     Active Substance: OXYCODONE
     Dosage: OXYCODONE WAS REDUCED EVERY 3 DAYS
  16. OXALIPLATIN. [Suspect]
     Active Substance: OXALIPLATIN
     Indication: PANCREATIC CARCINOMA
     Dosage: UNK UNK, QCY
  17. HEPARIN [Concomitant]
     Active Substance: HEPARIN SODIUM
     Dosage: 40 MG, QD,40 MG/0.4 1 AMP. Q.D. S.C.
     Route: 058
  18. OXYCODONE [Suspect]
     Active Substance: OXYCODONE
     Indication: CANCER PAIN
     Dosage: 200 MG, QD
  19. FLUOROURACIL. [Suspect]
     Active Substance: FLUOROURACIL
     Dosage: UNK
  20. CALCIUM FOLINATE [Suspect]
     Active Substance: LEUCOVORIN CALCIUM
     Dosage: UNK
  21. PANCREATIN [Concomitant]
     Active Substance: PANCRELIPASE
     Dosage: 25000 IU, QD,WITH A MAIN MEAL

REACTIONS (9)
  - Hypoaesthesia [Unknown]
  - Paraesthesia [Unknown]
  - Neuropathy peripheral [Recovering/Resolving]
  - Polyneuropathy [Recovering/Resolving]
  - Abdominal pain upper [Recovering/Resolving]
  - Neuralgia [Recovering/Resolving]
  - Neutropenia [Unknown]
  - Visceral pain [Unknown]
  - Intestinal obstruction [Unknown]
